FAERS Safety Report 7994736-3 (Version None)
Quarter: 2011Q4

REPORT INFORMATION
  Report Type: 
  Country: None (occurrence: None)
  Receive Date: 20111220
  Receipt Date: 20111212
  Transmission Date: 20120403
  Serious: Yes (Life-Threatening)
  Sender: FDA-Public Use
  Company Number: JP-JNJFOC-20111200952

PATIENT
  Sex: Male

DRUGS (13)
  1. LEVOTHYROXINE SODIUM [Concomitant]
     Indication: HYPOTHYROIDISM
     Route: 048
  2. LEVOFLOXACIN [Suspect]
     Indication: URINARY TRACT INFECTION
     Route: 048
     Dates: start: 20110624, end: 20110627
  3. TANNALBIN [Concomitant]
     Indication: DIARRHOEA
     Route: 048
     Dates: start: 20110426, end: 20110627
  4. PHENOBARBITAL TAB [Interacting]
     Indication: SEDATION
     Route: 048
     Dates: start: 20110426, end: 20110627
  5. CEFAZOLIN SODIUM [Concomitant]
     Indication: PROPHYLAXIS
     Route: 048
     Dates: start: 20110426
  6. ADSORBIN [Concomitant]
     Indication: PROPHYLAXIS
     Route: 048
     Dates: start: 20110426, end: 20110627
  7. TANNALBIN [Concomitant]
     Indication: PROPHYLAXIS
     Route: 048
     Dates: start: 20110426, end: 20110627
  8. CEFAZOLIN SODIUM [Concomitant]
     Indication: DIARRHOEA
     Route: 048
     Dates: start: 20110426
  9. HALOPERIDOL [Interacting]
     Indication: SEDATION
     Route: 048
     Dates: start: 20110426, end: 20110627
  10. FLAVINE ADENINE DINUCLEOTIDE DISODIUM [Concomitant]
     Route: 065
  11. DEPAKENE [Interacting]
     Indication: SEDATION
     Route: 048
     Dates: start: 20110426, end: 20110627
  12. ADSORBIN [Concomitant]
     Indication: DIARRHOEA
     Route: 048
     Dates: start: 20110426, end: 20110627
  13. TEGRETOL [Interacting]
     Indication: SEDATION
     Route: 048
     Dates: start: 20110426, end: 20110627

REACTIONS (5)
  - RHABDOMYOLYSIS [None]
  - HYPOGLYCAEMIA [None]
  - SHOCK [None]
  - EYELID OEDEMA [None]
  - DRUG INTERACTION [None]
